FAERS Safety Report 19584718 (Version 2)
Quarter: 2022Q3

REPORT INFORMATION
  Report Type: Report from Study
  Country: US (occurrence: US)
  Receive Date: 20210720
  Receipt Date: 20220930
  Transmission Date: 20221026
  Serious: Yes (Other)
  Sender: FDA-Public Use
  Company Number: US-TAKEDA-US201938389

PATIENT
  Age: 56 Year
  Sex: Male

DRUGS (3)
  1. LANADELUMAB [Suspect]
     Active Substance: LANADELUMAB
     Indication: Hereditary angioedema
     Dosage: 300 MILLIGRAM
     Route: 058
     Dates: start: 201908
  2. FIRAZYR [Suspect]
     Active Substance: ICATIBANT ACETATE
     Indication: Product used for unknown indication
     Dosage: 30 MILLIGRAM
     Route: 058
     Dates: start: 201901
  3. FIRAZYR [Suspect]
     Active Substance: ICATIBANT ACETATE
     Indication: Product used for unknown indication
     Dosage: 30 MILLIGRAM
     Route: 058
     Dates: start: 201901

REACTIONS (5)
  - Hereditary angioedema [Unknown]
  - Inappropriate schedule of product administration [Unknown]
  - Inability to afford medication [Unknown]
  - Product dose omission issue [Unknown]
  - Off label use [Unknown]

NARRATIVE: CASE EVENT DATE: 20191107
